FAERS Safety Report 8318739-4 (Version None)
Quarter: 2012Q2

REPORT INFORMATION
  Report Type: 
  Country: None (occurrence: None)
  Receive Date: 20120427
  Receipt Date: 20120423
  Transmission Date: 20120825
  Serious: Yes (Other)
  Sender: FDA-Public Use
  Company Number: IT-PFIZER INC-2011072987

PATIENT
  Age: 30 Year
  Sex: Male

DRUGS (15)
  1. INDINAVIR [Concomitant]
     Indication: HIV INFECTION
     Dosage: UNK
     Dates: start: 19960301, end: 19980401
  2. EFAVIRENZ [Suspect]
     Indication: HIV INFECTION
     Dosage: UNK
     Dates: start: 19980501, end: 19990401
  3. INDINAVIR/RITONAVIR [Suspect]
     Indication: HIV INFECTION
     Dosage: UNK
     Dates: start: 19990501, end: 20000101
  4. ZIDOVUDINE [Concomitant]
     Dosage: UNK
     Dates: start: 20000201, end: 20000901
  5. SAQUINAVIR [Concomitant]
     Indication: HIV INFECTION
     Dosage: UNK
     Dates: start: 19950801, end: 19960201
  6. ZIDOVUDINE [Concomitant]
     Indication: HIV INFECTION
     Dosage: UNK
     Dates: start: 19950801, end: 19960201
  7. ABACAVIR [Concomitant]
     Indication: HIV INFECTION
     Dosage: UNK
     Dates: start: 19990501, end: 20000101
  8. NELFINAVIR MESILATE [Suspect]
     Indication: HIV INFECTION
     Dosage: UNK
     Dates: start: 19980501, end: 19990401
  9. LAMIVUDINE [Concomitant]
     Dosage: UNK
     Dates: start: 20000201, end: 20000901
  10. STAVUDINE [Suspect]
     Indication: HIV INFECTION
     Dosage: UNK
     Dates: start: 19980501, end: 19990401
  11. LAMIVUDINE [Concomitant]
     Indication: HIV INFECTION
     Dosage: UNK
     Dates: start: 19950801, end: 19960201
  12. LAMIVUDINE [Concomitant]
     Dosage: UNK
     Dates: start: 19960301, end: 19980401
  13. LAMIVUDINE [Concomitant]
     Dosage: UNK
     Dates: start: 19990501, end: 20000101
  14. ZIDOVUDINE [Concomitant]
     Dosage: UNK
     Dates: start: 19960301, end: 19980401
  15. ZIDOVUDINE [Concomitant]
     Dosage: UNK
     Dates: start: 19990501, end: 20000101

REACTIONS (1)
  - MENTAL DISORDER [None]
